FAERS Safety Report 8095542-4 (Version None)
Quarter: 2012Q1

REPORT INFORMATION
  Report Type: 
  Country: None (occurrence: None)
  Receive Date: 20120129
  Receipt Date: 20111228
  Transmission Date: 20120608
  Serious: No
  Sender: FDA-Public Use
  Company Number: US-ABBOTT-11P-163-0887774-00

PATIENT
  Age: 50 Year
  Sex: Female

DRUGS (9)
  1. HUMIRA [Suspect]
     Indication: CROHN'S DISEASE
     Dosage: TXMNT PAUSED;UNKNOWN REASON
     Dates: start: 20111115
  2. KLONOPIN [Concomitant]
     Indication: DEPRESSION
     Dosage: 1-2 TABLETS
  3. ONDANSETRON HCL [Concomitant]
     Indication: NAUSEA
     Dosage: PRN
  4. VITAMIN B-12 [Concomitant]
     Indication: PRODUCT USED FOR UNKNOWN INDICATION
     Dosage: MONTHLY
  5. XANAX [Concomitant]
     Indication: DEPRESSION
  6. CYMBALTA [Concomitant]
     Indication: DEPRESSION
  7. XANAX [Concomitant]
     Indication: ANXIETY
     Dosage: 1 MG QID PRN
  8. LOMOTIL [Concomitant]
     Indication: DIARRHOEA
     Dosage: PRN
  9. POTASSIUM [Concomitant]
     Indication: MINERAL SUPPLEMENTATION
     Dosage: PRN HAVING DIARRHEA

REACTIONS (4)
  - NASOPHARYNGITIS [None]
  - DYSPHONIA [None]
  - COUGH [None]
  - INCREASED UPPER AIRWAY SECRETION [None]
